FAERS Safety Report 9543304 (Version 1)
Quarter: 2013Q3

REPORT INFORMATION
  Report Type: Spontaneous
  Country: FR (occurrence: FR)
  Receive Date: 20130923
  Receipt Date: 20130923
  Transmission Date: 20140515
  Serious: Yes (Hospitalization)
  Sender: FDA-Public Use
  Company Number: PHHY2013FR104878

PATIENT
  Age: 80 Year
  Sex: Male

DRUGS (13)
  1. ACLASTA [Suspect]
     Indication: OSTEOPOROTIC FRACTURE
     Dosage: UNK
     Route: 042
     Dates: start: 201110
  2. METFORMIN [Suspect]
     Indication: TYPE 2 DIABETES MELLITUS
     Dosage: 850 MG, 2 DAYS
     Route: 048
  3. METOJECT [Suspect]
     Dosage: 15 MG, 1 WEEK
     Route: 058
     Dates: start: 201109
  4. KARDEGIC [Concomitant]
     Dosage: 1 DF, 1 DAY
     Route: 048
  5. TRANSIPEG                          /01618701/ [Concomitant]
     Dosage: 1 DF,  2 DAY
     Route: 048
  6. VENTOLINE [Concomitant]
     Dosage: 2 DF,  1 DAY
  7. LESCOL [Concomitant]
     Dosage: 1 DF,  1 DAY
     Route: 048
  8. CARDENSIEL [Concomitant]
     Dosage: 1 DF, QD
     Route: 048
  9. CORTANCYL [Concomitant]
     Dosage: 7.5-10 MG, QD
     Route: 048
  10. DOLIPRANE [Concomitant]
     Dosage: UNK UKN, PRN
     Route: 048
  11. CACIT VITAMINE D3 [Concomitant]
     Dosage: 1 DF, QD
     Route: 048
  12. SPASFON [Concomitant]
     Dosage: 6 DF, PRN
     Route: 048
  13. SPECIAFOLDINE [Concomitant]

REACTIONS (1)
  - Pancytopenia [Not Recovered/Not Resolved]
